FAERS Safety Report 8250500-1 (Version None)
Quarter: 2012Q2

REPORT INFORMATION
  Report Type: 
  Country: None (occurrence: None)
  Receive Date: 20120402
  Receipt Date: 20120402
  Transmission Date: 20120825
  Serious: Yes (Other)
  Sender: FDA-Public Use
  Company Number: None

PATIENT
  Age: 38 Year
  Sex: Female
  Weight: 68.038 kg

DRUGS (2)
  1. VIIBRYD [Suspect]
     Indication: ANXIETY
     Dosage: 20.0 MG
     Route: 048
     Dates: start: 20120307, end: 20120331
  2. VIIBRYD [Suspect]
     Indication: DEPRESSION
     Dosage: 20.0 MG
     Route: 048
     Dates: start: 20120307, end: 20120331

REACTIONS (13)
  - AMNESIA [None]
  - ACTIVITIES OF DAILY LIVING IMPAIRED [None]
  - MUSCULOSKELETAL DISCOMFORT [None]
  - INSOMNIA [None]
  - HEADACHE [None]
  - MYALGIA [None]
  - FATIGUE [None]
  - AGITATION [None]
  - MUSCLE TWITCHING [None]
  - DYSPNOEA EXERTIONAL [None]
  - NIGHT SWEATS [None]
  - HALLUCINATION [None]
  - BONE PAIN [None]
